FAERS Safety Report 9629988 (Version 1)
Quarter: 2013Q4

REPORT INFORMATION
  Report Type: Spontaneous
  Country: IT (occurrence: IT)
  Receive Date: 20131017
  Receipt Date: 20131017
  Transmission Date: 20140711
  Serious: Yes (Other)
  Sender: FDA-Public Use
  Company Number: IT-TEVA-436680ISR

PATIENT
  Age: 42 Year
  Sex: Female

DRUGS (6)
  1. FLUOROURACILE TEVA [Suspect]
     Indication: BREAST CANCER
     Dosage: 925 MILLIGRAM DAILY;
     Route: 042
     Dates: start: 20130307, end: 20130307
  2. CICLOFOSFAMIDE [Suspect]
     Indication: BREAST CANCER
     Dosage: 925 MILLIGRAM DAILY;
     Route: 042
     Dates: start: 20130307, end: 20130307
  3. EPIRUBICINA HOSPIRA [Suspect]
     Indication: BREAST CANCER
     Dosage: 185 MILLIGRAM DAILY;
     Route: 042
     Dates: start: 20130307, end: 20130307
  4. RANITIDINA CLORIDRATO [Concomitant]
     Dosage: 150 MILLIGRAM DAILY;
     Route: 048
  5. SPORANOX 100MG [Concomitant]
     Dosage: 1 DOSAGE FORMS DAILY;
     Dates: start: 20130318, end: 20130322
  6. LEVOFLOXACINA TEVA 500MG [Concomitant]
     Dosage: 1 DOSAGE FORMS DAILY;
     Dates: start: 20130318, end: 20130322

REACTIONS (1)
  - Febrile neutropenia [Recovered/Resolved]
